FAERS Safety Report 6761932 (Version 5)
Quarter: 2018Q4

REPORT INFORMATION
  Report Type: Spontaneous
  Country: FR (occurrence: FR)
  Receive Date: 20080917
  Receipt Date: 20181228
  Transmission Date: 20190205
  Serious: Yes (Death, Hospitalization)
  Sender: FDA-Public Use
  Company Number: FR-PFIZER INC-2008077054

PATIENT
  Age: 56 Year
  Sex: Male

DRUGS (12)
  1. TERCIAN /00759301/ [Suspect]
     Active Substance: CYAMEMAZINE
     Indication: PSYCHOTIC DISORDER
     Dosage: 50 MG, 2X/DAY
     Route: 048
     Dates: start: 20080718
  2. EFERALGAN [Concomitant]
     Dosage: 6 DF, DAILY
     Route: 048
     Dates: start: 20080622, end: 20080625
  3. SPASFON LYOC [Concomitant]
     Active Substance: PHLOROGLUCINOL
     Dosage: 6 DF, DAILY
     Dates: start: 20080626, end: 2008
  4. SOLIAN [Suspect]
     Active Substance: AMISULPRIDE
     Indication: PSYCHOTIC DISORDER
     Dosage: 50 MG, 1X/DAY
     Route: 048
     Dates: start: 20080621
  5. VENTOLINE /00139501/ [Concomitant]
     Active Substance: ALBUTEROL
     Dosage: 6 DF, DAILY
     Route: 055
     Dates: start: 20080629, end: 2008
  6. AMOXICILLIN TRIHYDRATE AND POTASSIUM CLAVULAN [Suspect]
     Active Substance: AMOXICILLIN\CLAVULANATE POTASSIUM
     Indication: PNEUMONIA ASPIRATION
     Dosage: 1 G / 125 MG, 1 DF 3X/DAY
     Route: 048
     Dates: start: 20080622, end: 20080630
  7. KETOPROFEN. [Concomitant]
     Active Substance: KETOPROFEN
     Dosage: UNK
     Dates: start: 20080622, end: 20080626
  8. LEPTICUR [Suspect]
     Active Substance: TROPATEPINE HYDROCHLORIDE
     Indication: PSYCHOTIC DISORDER
     Dosage: 10 MG, 2X/DAY
     Route: 048
     Dates: start: 20080621
  9. LOXAPAC /00401801/ [Suspect]
     Active Substance: LOXAPINE
     Indication: PSYCHOTIC DISORDER
     Dosage: 25 MG, 3X/DAY
     Dates: start: 20080703
  10. XANAX [Suspect]
     Active Substance: ALPRAZOLAM
     Indication: PSYCHOTIC DISORDER
     Dosage: 0.25 MG, 3X/DAY
     Route: 048
     Dates: start: 20080718
  11. ABILIFY [Suspect]
     Active Substance: ARIPIPRAZOLE
     Indication: PSYCHOTIC DISORDER
     Dosage: 10 MG, 1X/DAY
     Route: 048
     Dates: start: 20080715
  12. ATARAX [Suspect]
     Active Substance: HYDROXYZINE HYDROCHLORIDE
     Indication: PSYCHOTIC DISORDER
     Dosage: 1 DF, DAILY
     Dates: start: 20080621

REACTIONS (5)
  - Diarrhoea infectious [Fatal]
  - Acute kidney injury [Fatal]
  - Enterocolitis [Fatal]
  - Sepsis [Fatal]
  - Leukocytosis [Fatal]

NARRATIVE: CASE EVENT DATE: 20080718
